FAERS Safety Report 16618939 (Version 2)
Quarter: 2019Q3

REPORT INFORMATION
  Report Type: Report from Study
  Country: ES (occurrence: ES)
  Receive Date: 20190723
  Receipt Date: 20190801
  Transmission Date: 20191004
  Serious: Yes (Other)
  Sender: FDA-Public Use
  Company Number: ES-TEVA-2019-ES-1081775

PATIENT
  Sex: Female

DRUGS (2)
  1. TEMOZOLOMIDE. [Suspect]
     Active Substance: TEMOZOLOMIDE
     Dosage: FOR 5 CONSECUTIVE DAYS EVERY 28 DAYS
     Route: 048
     Dates: start: 2016
  2. TEMOZOLOMIDE. [Suspect]
     Active Substance: TEMOZOLOMIDE
     Indication: GLIOBLASTOMA MULTIFORME
     Dosage: 75 MG/M2 DAILY; INCLUDING WEEKENDS
     Route: 048
     Dates: start: 201603

REACTIONS (2)
  - Bone marrow failure [Unknown]
  - Subdural hygroma [Unknown]
